FAERS Safety Report 8091832-X (Version None)
Quarter: 2012Q1

REPORT INFORMATION
  Report Type: 
  Country: None (occurrence: None)
  Receive Date: 20120129
  Receipt Date: 20111115
  Transmission Date: 20120608
  Serious: No
  Sender: FDA-Public Use
  Company Number: US-ABBOTT-11P-163-0874173-00

PATIENT
  Sex: Female
  Weight: 65.83 kg

DRUGS (3)
  1. UNNAMED NASAL SPRAY [Concomitant]
     Indication: HYPERSENSITIVITY
  2. HUMIRA [Suspect]
     Indication: CROHN'S DISEASE
     Dates: start: 20070701
  3. LORATADINE [Concomitant]
     Indication: HYPERSENSITIVITY

REACTIONS (4)
  - INJECTION SITE PAIN [None]
  - INCORRECT DOSE ADMINISTERED [None]
  - INJECTION SITE MASS [None]
  - WRONG TECHNIQUE IN DRUG USAGE PROCESS [None]
